FAERS Safety Report 22357276 (Version 1)
Quarter: 2023Q2

REPORT INFORMATION
  Report Type: Spontaneous
  Country: US (occurrence: US)
  Receive Date: 20230524
  Receipt Date: 20230524
  Transmission Date: 20230722
  Serious: Yes (Death, Other)
  Sender: FDA-Public Use
  Company Number: US-TERSERA THERAPEUTICS LLC-2023TRS002414

PATIENT

DRUGS (1)
  1. XERMELO [Suspect]
     Active Substance: TELOTRISTAT ETHYL
     Indication: Carcinoid syndrome
     Dosage: 500 MG, TID (2 TABLETS BY MOUTH IN THE MORNING, 2 TABLETS IN THE EVENING AND 2 TABLETS BEFORE BEDTIM
     Route: 048
     Dates: start: 20170414

REACTIONS (3)
  - Death [Fatal]
  - Overdose [Unknown]
  - No adverse event [Unknown]

NARRATIVE: CASE EVENT DATE: 20230515
